FAERS Safety Report 6422881-2 (Version None)
Quarter: 2009Q4

REPORT INFORMATION
  Report Type: 
  Country: None (occurrence: None)
  Receive Date: 20091102
  Receipt Date: 20091026
  Transmission Date: 20100525
  Serious: Yes (Other)
  Sender: FDA-Public Use
  Company Number: TR-ROCHE-664306

PATIENT
  Age: 57 Year
  Sex: Female

DRUGS (5)
  1. MYCOPHENOLATE MOFETIL [Suspect]
     Route: 065
  2. AZATHIOPRINE [Suspect]
     Route: 065
  3. METHYLPREDNISOLONE 4MG TAB [Suspect]
     Route: 065
  4. METHYLPREDNISOLONE 4MG TAB [Suspect]
     Dosage: DOSE DECREASED.
     Route: 065
  5. CYCLOSPORINE [Suspect]
     Route: 065

REACTIONS (2)
  - KAPOSI'S SARCOMA [None]
  - LIVER DISORDER [None]
